FAERS Safety Report 6678190-X (Version None)
Quarter: 2010Q2

REPORT INFORMATION
  Report Type: 
  Country: None (occurrence: None)
  Receive Date: 20100408
  Receipt Date: 20100408
  Transmission Date: 20101027
  Serious: Yes (Hospitalization)
  Sender: FDA-Public Use
  Company Number: None

PATIENT
  Age: 82 Year
  Sex: Male
  Weight: 60 kg

DRUGS (2)
  1. WARFARIN SODIUM [Suspect]
     Indication: ATRIAL FIBRILLATION
     Dosage: 3 MG UD PO
     Route: 048
     Dates: start: 20091103, end: 20100213
  2. WARFARIN SODIUM [Suspect]
     Indication: CEREBROVASCULAR ACCIDENT
     Dosage: 3 MG UD PO
     Route: 048
     Dates: start: 20091103, end: 20100213

REACTIONS (3)
  - FALL [None]
  - HAEMATOMA [None]
  - HAEMORRHAGE [None]
